FAERS Safety Report 6911932-4 (Version None)
Quarter: 2010Q3

REPORT INFORMATION
  Report Type: 
  Country: None (occurrence: None)
  Receive Date: 20100806
  Receipt Date: 20070904
  Transmission Date: 20110219
  Serious: No
  Sender: FDA-Public Use
  Company Number: US-PFIZER INC-2007055432

PATIENT
  Sex: Male

DRUGS (3)
  1. DETROL LA [Suspect]
     Indication: NEUROGENIC BLADDER
     Route: 048
  2. DETROL LA [Suspect]
     Indication: SPINAL CORD INJURY
  3. DETROL [Suspect]

REACTIONS (1)
  - DRUG INEFFECTIVE [None]
